FAERS Safety Report 4681784-4 (Version None)
Quarter: 2005Q2

REPORT INFORMATION
  Report Type: 
  Country: None (occurrence: None)
  Receive Date: 20050601
  Receipt Date: 20050513
  Transmission Date: 20051028
  Serious: Yes (Other)
  Sender: FDA-Public Use
  Company Number: USA050187538

PATIENT
  Age: 86 Year
  Sex: Female

DRUGS (3)
  1. FORTEO [Suspect]
     Indication: OSTEOPOROSIS
     Dosage: 20 UG/1 DAY
     Dates: start: 20040801
  2. CELEBREX [Concomitant]
  3. VIOXX [Concomitant]

REACTIONS (15)
  - BONE DISORDER [None]
  - BONE PAIN [None]
  - BUNION [None]
  - CONDITION AGGRAVATED [None]
  - DYSPHONIA [None]
  - ERYTHEMA [None]
  - FEELING ABNORMAL [None]
  - INJECTION SITE PAIN [None]
  - LYMPHOMA [None]
  - MASS [None]
  - MUSCULOSKELETAL STIFFNESS [None]
  - PAIN IN EXTREMITY [None]
  - PHARMACEUTICAL PRODUCT COMPLAINT [None]
  - POOR PERIPHERAL CIRCULATION [None]
  - PRURITUS [None]
